FAERS Safety Report 7393675-9 (Version None)
Quarter: 2011Q2

REPORT INFORMATION
  Report Type: 
  Country: None (occurrence: None)
  Receive Date: 20110405
  Receipt Date: 20110322
  Transmission Date: 20111010
  Serious: No
  Sender: FDA-Public Use
  Company Number: US-JNJFOC-20110311294

PATIENT
  Sex: Female
  Weight: 56.7 kg

DRUGS (1)
  1. FENTANYL-100 [Suspect]
     Indication: BONE PAIN
     Route: 062

REACTIONS (4)
  - PAIN IN EXTREMITY [None]
  - WRONG TECHNIQUE IN DRUG USAGE PROCESS [None]
  - DRUG DOSE OMISSION [None]
  - PRODUCT ADHESION ISSUE [None]
